FAERS Safety Report 6947794-9 (Version None)
Quarter: 2010Q3

REPORT INFORMATION
  Report Type: 
  Country: None (occurrence: None)
  Receive Date: 20100828
  Receipt Date: 20091005
  Transmission Date: 20110219
  Serious: No
  Sender: FDA-Public Use
  Company Number: US-ABBOTT-09P-163-0600745-00

PATIENT
  Sex: Female
  Weight: 70.37 kg

DRUGS (2)
  1. NIASPAN [Suspect]
     Indication: BLOOD CHOLESTEROL INCREASED
     Dosage: TAKEN NIGHTLY
     Dates: start: 20090927, end: 20091003
  2. PROZAC [Concomitant]
     Indication: PRODUCT USED FOR UNKNOWN INDICATION
     Dosage: TAKEN DAILY
     Route: 048

REACTIONS (5)
  - FEELING HOT [None]
  - PARAESTHESIA [None]
  - PRURITUS [None]
  - RASH VESICULAR [None]
  - SKIN BURNING SENSATION [None]
